FAERS Safety Report 5323539-3 (Version None)
Quarter: 2007Q2

REPORT INFORMATION
  Report Type: 
  Country: None (occurrence: None)
  Receive Date: 20070508
  Receipt Date: 20070430
  Transmission Date: 20071010
  Serious: Yes (Hospitalization, Other)
  Sender: FDA-Public Use
  Company Number: 07052101

PATIENT
  Age: 68 Year
  Sex: Male

DRUGS (7)
  1. AMIODARONE HCL [Suspect]
     Indication: ATRIAL FIBRILLATION
     Dosage: 200 MG, QD; ORAL
     Route: 048
  2. METOPROLOL TARTRATE [Concomitant]
  3. ENALAPRIL MALEATE [Concomitant]
  4. SIMVASTATIN [Concomitant]
  5. ASPIRIN [Concomitant]
  6. FOLIC ACID [Concomitant]
  7. WARFARIN SODIUM [Concomitant]

REACTIONS (12)
  - ANXIETY [None]
  - ATRIAL FIBRILLATION [None]
  - CHEST PAIN [None]
  - CHILLS [None]
  - FLUSHING [None]
  - HEART RATE INCREASED [None]
  - HYPERHIDROSIS [None]
  - HYPERTHYROIDISM [None]
  - PYREXIA [None]
  - TEMPERATURE INTOLERANCE [None]
  - THYROIDITIS [None]
  - WEIGHT DECREASED [None]
